APPROVED DRUG PRODUCT: FENTANYL CITRATE
Active Ingredient: FENTANYL CITRATE
Strength: EQ 0.2MG BASE
Dosage Form/Route: TABLET;SUBLINGUAL
Application: A207338 | Product #002
Applicant: ACTAVIS LABORATORIES FL INC
Approved: Nov 17, 2017 | RLD: No | RS: No | Type: DISCN